FAERS Safety Report 9098044 (Version 1)
Quarter: 2013Q1

REPORT INFORMATION
  Report Type: Spontaneous
  Country: FR (occurrence: FR)
  Receive Date: 20130212
  Receipt Date: 20130212
  Transmission Date: 20140127
  Serious: Yes (Other)
  Sender: FDA-Public Use
  Company Number: FR-GILEAD-2013-0069614

PATIENT
  Sex: Female

DRUGS (3)
  1. TRUVADA [Suspect]
     Indication: HIV INFECTION
     Dosage: UNK
     Route: 048
     Dates: start: 20110909, end: 20121012
  2. REYATAZ [Concomitant]
     Indication: HIV INFECTION
     Dosage: UNK
     Dates: start: 20110909
  3. NORVIR [Concomitant]
     Indication: HIV INFECTION
     Dosage: UNK
     Dates: start: 20110909

REACTIONS (1)
  - Osteoporosis [Unknown]
